FAERS Safety Report 7446022-8 (Version None)
Quarter: 2011Q2

REPORT INFORMATION
  Report Type: 
  Country: None (occurrence: None)
  Receive Date: 20110429
  Receipt Date: 20110421
  Transmission Date: 20111010
  Serious: Yes (Other)
  Sender: FDA-Public Use
  Company Number: US-CEPHALON-2011001989

PATIENT
  Sex: Female
  Weight: 80 kg

DRUGS (4)
  1. NUVIGIL [Suspect]
     Indication: MAJOR DEPRESSION
     Route: 048
     Dates: start: 20100603, end: 20100731
  2. IBUPROFEN [Concomitant]
     Dates: start: 20091201
  3. EXCEDRIN (MIGRAINE) [Concomitant]
     Dates: start: 20091201
  4. DIVALPROEX [Suspect]
     Route: 048
     Dates: start: 20100407, end: 20100731

REACTIONS (1)
  - HEPATITIS ACUTE [None]
